FAERS Safety Report 15449672 (Version 1)
Quarter: 2018Q4

REPORT INFORMATION
  Report Type: Spontaneous
  Country: US (occurrence: US)
  Receive Date: 20181001
  Receipt Date: 20181001
  Transmission Date: 20190204
  Serious: Yes (Other)
  Sender: FDA-Public Use
  Company Number: US-BAYER-2018-173162

PATIENT
  Age: 62 Year
  Sex: Female

DRUGS (3)
  1. ALKA-SELTZER HEARTBURN RELIEFCHEWS [Suspect]
     Active Substance: CALCIUM CARBONATE
     Indication: GASTROINTESTINAL DISORDER
     Dosage: 1 OR 2
     Route: 048
     Dates: start: 20180908, end: 20180912
  2. LANTUS [Concomitant]
     Active Substance: INSULIN GLARGINE
  3. METFORMIN [Concomitant]
     Active Substance: METFORMIN HYDROCHLORIDE
     Dosage: 1 DF, TID

REACTIONS (1)
  - Blood glucose increased [Recovered/Resolved]
